FAERS Safety Report 25920155 (Version 2)
Quarter: 2025Q4

REPORT INFORMATION
  Report Type: Spontaneous
  Country: GB (occurrence: GB)
  Receive Date: 20251014
  Receipt Date: 20251224
  Transmission Date: 20260118
  Serious: Yes (Hospitalization)
  Sender: SANOFI AVENTIS
  Company Number: GB-DialogSolutions-SAAVPROD-PI826936-C1

PATIENT
  Age: 70 Year
  Sex: Female

DRUGS (6)
  1. RIFAMPIN [Interacting]
     Active Substance: RIFAMPIN
     Indication: Brucellosis
     Dosage: UNK
     Route: 042
     Dates: start: 20241121
  2. RIFAMPIN [Interacting]
     Active Substance: RIFAMPIN
     Dosage: 600 MG BID
     Dates: start: 20241125
  3. RIFAMPIN [Interacting]
     Active Substance: RIFAMPIN
     Indication: Brucellosis
     Dosage: UNK
     Route: 048
  4. SERTRALINE HYDROCHLORIDE [Interacting]
     Active Substance: SERTRALINE HYDROCHLORIDE
     Indication: Depression
     Dosage: 50  MG, QD
     Dates: start: 20241121
  5. SERTRALINE HYDROCHLORIDE [Interacting]
     Active Substance: SERTRALINE HYDROCHLORIDE
     Dosage: 100 MG, QD (INCREASED)
  6. DOXYCYCLINE [Concomitant]
     Active Substance: DOXYCYCLINE
     Indication: Brucellosis
     Dosage: UNK

REACTIONS (6)
  - Panic disorder [Recovered/Resolved]
  - Drug interaction [Recovered/Resolved]
  - Anxiety [Recovered/Resolved]
  - Impaired quality of life [Recovered/Resolved]
  - Panic attack [Recovered/Resolved]
  - Therapeutic product effect decreased [Recovered/Resolved]

NARRATIVE: CASE EVENT DATE: 20241125
